FAERS Safety Report 6247901-X (Version None)
Quarter: 2009Q2

REPORT INFORMATION
  Report Type: 
  Country: None (occurrence: None)
  Receive Date: 20090626
  Receipt Date: 20090624
  Transmission Date: 20091009
  Serious: Yes (Other)
  Sender: FDA-Public Use
  Company Number: FR-WYE-G03245409

PATIENT
  Age: 75 Year
  Sex: Male
  Weight: 64 kg

DRUGS (4)
  1. TYGACIL [Suspect]
     Indication: PERITONITIS
     Dosage: 50 MG TOTAL DAILY
     Route: 042
     Dates: start: 20090226, end: 20090309
  2. ACETAMINOPHEN [Concomitant]
     Indication: PAIN
     Route: 042
  3. MORPHINE [Concomitant]
     Indication: PAIN
     Dosage: UNKNOWN
     Route: 042
  4. TAZOCILLINE [Concomitant]
     Indication: PERITONITIS
     Route: 042
     Dates: start: 20090224, end: 20090309

REACTIONS (1)
  - SMALL INTESTINAL OBSTRUCTION [None]
